FAERS Safety Report 9487271 (Version 2)
Quarter: 2013Q3

REPORT INFORMATION
  Report Type: Other
  Country: US (occurrence: US)
  Receive Date: 20130829
  Receipt Date: 20130829
  Transmission Date: 20140515
  Serious: Yes (Hospitalization)
  Sender: FDA-Public Use
  Company Number: US-BRISTOL-MYERS SQUIBB COMPANY-19161421

PATIENT
  Age: 39 Year
  Sex: Male

DRUGS (4)
  1. MITOMYCIN-C [Suspect]
     Indication: APPENDIX CANCER
     Route: 033
     Dates: start: 200711
  2. ADRIACIN [Suspect]
     Indication: APPENDIX CANCER
     Route: 033
     Dates: start: 200711
  3. 5-FLUOROURACIL [Suspect]
     Indication: APPENDIX CANCER
     Route: 033
     Dates: start: 200711, end: 200711
  4. LEUCOVORIN [Concomitant]
     Dates: start: 200711, end: 200711

REACTIONS (1)
  - Gastric perforation [Recovered/Resolved]
